FAERS Safety Report 24324622 (Version 1)
Quarter: 2024Q3

REPORT INFORMATION
  Report Type: Spontaneous
  Country: US (occurrence: US)
  Receive Date: 20240916
  Receipt Date: 20240916
  Transmission Date: 20241017
  Serious: No
  Sender: Karo Pharma
  Company Number: US-Karo Pharma-2161676

PATIENT
  Sex: Female

DRUGS (1)
  1. LAMISIL [Suspect]
     Active Substance: TERBINAFINE HYDROCHLORIDE
     Indication: Product used for unknown indication
     Dates: start: 20240812

REACTIONS (2)
  - Drug ineffective [Unknown]
  - No adverse event [Unknown]
